FAERS Safety Report 4732470-3 (Version None)
Quarter: 2005Q3

REPORT INFORMATION
  Report Type: 
  Country: None (occurrence: None)
  Receive Date: 20050801
  Receipt Date: 20050722
  Transmission Date: 20060218
  Serious: Yes (Disabling, Other)
  Sender: FDA-Public Use
  Company Number: 2005-07-0800

PATIENT
  Age: 50 Year
  Sex: Male
  Weight: 89.8122 kg

DRUGS (3)
  1. PEG-INTRON [Suspect]
     Indication: HEPATITIS C
     Dosage: 150 MG QWK INTRAMUSCULA
     Route: 030
     Dates: start: 20050624, end: 20050714
  2. REBETOL [Suspect]
     Indication: HEPATITIS C
     Dosage: 1000MG QD ORAL
     Route: 048
     Dates: start: 20050624, end: 20050714
  3. DILANTIN [Suspect]
     Indication: CONVULSION
     Dosage: 200 MG BID

REACTIONS (2)
  - CONVULSION [None]
  - DRUG LEVEL DECREASED [None]
